FAERS Safety Report 19459944 (Version 1)
Quarter: 2021Q2

REPORT INFORMATION
  Report Type: Spontaneous
  Country: US (occurrence: LB)
  Receive Date: 20210625
  Receipt Date: 20210625
  Transmission Date: 20210717
  Serious: No
  Sender: FDA-Public Use
  Company Number: US-JNJFOC-20210642040

PATIENT
  Age: 50 Year
  Sex: Male

DRUGS (4)
  1. XARELTO [Suspect]
     Active Substance: RIVAROXABAN
     Indication: PULMONARY EMBOLISM
     Route: 048
     Dates: start: 20210329
  2. AZITHROMYCIN ANHYDROUS. [Concomitant]
     Active Substance: AZITHROMYCIN ANHYDROUS
     Dosage: 250
  3. PREDNISONE. [Concomitant]
     Active Substance: PREDNISONE
     Dosage: 20?10
  4. SUPRAX [Concomitant]
     Active Substance: CEFIXIME
     Dosage: 400

REACTIONS (4)
  - Pruritus [Unknown]
  - Myalgia [Unknown]
  - Fatigue [Unknown]
  - Anxiety [Unknown]
